FAERS Safety Report 9393618 (Version 2)
Quarter: 2013Q3

REPORT INFORMATION
  Report Type: Report from Study
  Country: JP (occurrence: JP)
  Receive Date: 20130710
  Receipt Date: 20130820
  Transmission Date: 20140515
  Serious: Yes (Other)
  Sender: FDA-Public Use
  Company Number: JP-GLAXOSMITHKLINE-B0870124A

PATIENT
  Age: 63 Year
  Sex: Male
  Weight: 36 kg

DRUGS (11)
  1. VOTRIENT [Suspect]
     Indication: LEIOMYOSARCOMA
     Dosage: 800MG PER DAY
     Route: 048
     Dates: start: 20130205, end: 20130217
  2. CIPROXAN [Concomitant]
     Indication: PSEUDOMONAS INFECTION
     Route: 065
  3. OXYCONTIN [Concomitant]
     Indication: LEIOMYOSARCOMA
     Route: 048
  4. OXINORM [Concomitant]
     Indication: LEIOMYOSARCOMA
     Route: 048
  5. SENNOSIDE [Concomitant]
     Route: 048
  6. FAMOTIDINE [Concomitant]
     Route: 048
  7. NOVAMIN [Concomitant]
     Indication: NAUSEA
     Route: 065
  8. AZULENE-GLUTAMINE FINE GRANULE [Concomitant]
     Route: 048
  9. ADEFURONIC [Concomitant]
     Route: 054
  10. MAGLAX [Concomitant]
     Route: 048
  11. PRIMPERAN [Concomitant]
     Route: 048

REACTIONS (7)
  - Nausea [Unknown]
  - Malaise [Unknown]
  - Bradycardia [Recovered/Resolved]
  - Renal impairment [Unknown]
  - Infection [Not Recovered/Not Resolved]
  - Impaired healing [Not Recovered/Not Resolved]
  - Decreased appetite [Not Recovered/Not Resolved]
